FAERS Safety Report 7347160-0 (Version None)
Quarter: 2011Q1

REPORT INFORMATION
  Report Type: 
  Country: None (occurrence: None)
  Receive Date: 20110311
  Receipt Date: 20110307
  Transmission Date: 20110831
  Serious: Yes (Hospitalization, Other)
  Sender: FDA-Public Use
  Company Number: US-PFIZER INC-2011049157

PATIENT
  Sex: Male

DRUGS (18)
  1. LYRICA [Concomitant]
     Dosage: UNK
  2. MECLIZINE [Concomitant]
     Dosage: UNK
  3. XANAX [Concomitant]
     Dosage: UNK
  4. OXYCODONE [Concomitant]
     Dosage: UNK
  5. PLAVIX [Concomitant]
     Dosage: UNK
  6. SCOPOLAMINE [Concomitant]
     Dosage: UNK
  7. LOSARTAN POTASSIUM [Concomitant]
     Dosage: UNK
  8. K-DUR [Concomitant]
     Dosage: UNK
  9. AMBIEN [Concomitant]
     Dosage: UNK
  10. IMITREX [Suspect]
     Indication: MIGRAINE
     Dosage: 50 MG, AS NEEDED
     Route: 048
  11. LOPRESSOR [Concomitant]
     Dosage: UNK
  12. LIPITOR [Concomitant]
     Dosage: UNK
  13. DEXILANT [Concomitant]
     Dosage: UNK
  14. MS CONTIN [Concomitant]
     Dosage: UNK
  15. WELLBUTRIN SR [Concomitant]
     Dosage: UNK
  16. PERCOCET [Concomitant]
     Dosage: UNK
  17. SERTRALINE HYDROCHLORIDE [Suspect]
     Dosage: UNK
  18. SEROQUEL [Suspect]
     Dosage: UNK

REACTIONS (7)
  - ARTERIAL OCCLUSIVE DISEASE [None]
  - CORONARY ARTERY BYPASS [None]
  - CATHETERISATION CARDIAC [None]
  - HEART RATE IRREGULAR [None]
  - IMPLANTABLE DEFIBRILLATOR INSERTION [None]
  - MYOCARDIAL INFARCTION [None]
  - DEVICE MALFUNCTION [None]
